FAERS Safety Report 4416009-8 (Version None)
Quarter: 2004Q3

REPORT INFORMATION
  Report Type: 
  Country: None (occurrence: None)
  Receive Date: 20040802
  Receipt Date: 20040726
  Transmission Date: 20050211
  Serious: Yes (Death)
  Sender: FDA-Public Use
  Company Number: 04H-028-0268069-00

PATIENT
  Age: 67 Year
  Sex: Female

DRUGS (2)
  1. HEPARIN SODIUM [Suspect]
     Indication: DISEASE RECURRENCE
  2. HEPARIN SODIUM [Suspect]
     Indication: EMBOLISM

REACTIONS (5)
  - CARDIAC ARREST [None]
  - EMBOLIC CEREBRAL INFARCTION [None]
  - EMBOLISM [None]
  - HEPARIN-INDUCED THROMBOCYTOPENIA [None]
  - LOSS OF CONSCIOUSNESS [None]
